FAERS Safety Report 24418571 (Version 1)
Quarter: 2024Q4

REPORT INFORMATION
  Report Type: Spontaneous
  Country: US (occurrence: US)
  Receive Date: 20241009
  Receipt Date: 20241009
  Transmission Date: 20250114
  Serious: Yes (Other)
  Sender: BRISTOL MYERS SQUIBB
  Company Number: US-BRISTOL-MYERS SQUIBB COMPANY-2024-156338

PATIENT
  Age: 80 Year
  Sex: Male
  Weight: 108.41 kg

DRUGS (1)
  1. REVLIMID [Suspect]
     Active Substance: LENALIDOMIDE
     Indication: Plasma cell myeloma
     Dosage: 2 WKS ON, 1 WK OFF.
     Route: 048

REACTIONS (2)
  - Blood disorder [Recovering/Resolving]
  - Off label use [Unknown]
